FAERS Safety Report 10219536 (Version 1)
Quarter: 2014Q2

REPORT INFORMATION
  Report Type: Spontaneous
  Country: US (occurrence: US)
  Receive Date: 20140605
  Receipt Date: 20140605
  Transmission Date: 20141212
  Serious: Yes (Other)
  Sender: FDA-Public Use
  Company Number: US-GLAXOSMITHKLINE-A1075278A

PATIENT
  Sex: Female
  Weight: 95.5 kg

DRUGS (4)
  1. LAMICTAL [Suspect]
     Indication: CONVULSION
     Dosage: 200MG TWICE PER DAY
     Route: 048
  2. VIMPAT [Concomitant]
  3. GLUCOSAMINE [Concomitant]
  4. TRAZODONE [Concomitant]

REACTIONS (6)
  - Convulsion [Recovered/Resolved]
  - Weight decreased [Not Recovered/Not Resolved]
  - Dizziness [Recovered/Resolved]
  - Feeling abnormal [Recovered/Resolved]
  - Performance status decreased [Recovered/Resolved]
  - Overdose [Unknown]
